FAERS Safety Report 9575280 (Version 6)
Quarter: 2013Q4

REPORT INFORMATION
  Report Type: Report from Study
  Country: US (occurrence: US)
  Receive Date: 20131001
  Receipt Date: 20131223
  Transmission Date: 20140711
  Serious: Yes (Life-Threatening, Hospitalization)
  Sender: FDA-Public Use
  Company Number: US-ACTELION-A-NJ2013-88928

PATIENT
  Age: 42 Year
  Sex: Female

DRUGS (4)
  1. TRACLEER [Suspect]
     Indication: PULMONARY ARTERIAL HYPERTENSION
     Dosage: UNK
     Route: 048
  2. REMODULIN [Concomitant]
  3. SILDENAFIL [Concomitant]
  4. COUMADIN [Concomitant]

REACTIONS (13)
  - Respiratory failure [Recovering/Resolving]
  - Endotracheal intubation [Recovering/Resolving]
  - Fatigue [Recovering/Resolving]
  - Dyspnoea [Recovering/Resolving]
  - Concomitant disease aggravated [Recovering/Resolving]
  - Hypoxia [Recovering/Resolving]
  - Asthenia [Recovering/Resolving]
  - Loss of consciousness [Recovering/Resolving]
  - Deep vein thrombosis [Recovered/Resolved]
  - Device related sepsis [Recovered/Resolved]
  - Thrombosis in device [Recovered/Resolved]
  - Device related infection [Recovering/Resolving]
  - Pseudomonas infection [Recovered/Resolved]
